FAERS Safety Report 6195454-7 (Version None)
Quarter: 2009Q2

REPORT INFORMATION
  Report Type: 
  Country: None (occurrence: None)
  Receive Date: 20090519
  Receipt Date: 20090507
  Transmission Date: 20091009
  Serious: Yes (Other)
  Sender: FDA-Public Use
  Company Number: GB-PFIZER INC-2009189043

PATIENT
  Age: 65 Year

DRUGS (6)
  1. LYRICA [Suspect]
     Indication: NEURALGIA
     Dosage: 300 MG, 1X/DAY
     Route: 048
     Dates: start: 20070101, end: 20081128
  2. VERAPAMIL HYDROCHLORIDE [Concomitant]
     Indication: TACHYARRHYTHMIA
     Dosage: 80 G, AS NEEDED
     Route: 048
     Dates: start: 20070101
  3. VERAPAMIL HYDROCHLORIDE [Concomitant]
     Indication: SUPRAVENTRICULAR TACHYCARDIA
  4. SOLIFENACIN [Concomitant]
     Indication: MICTURITION URGENCY
     Dosage: 5 MG, 1X/DAY
     Route: 048
  5. PARACETAMOL [Concomitant]
     Indication: PAIN
     Dosage: 0 TO 2 G DAILY
     Route: 048
  6. AMITRIPTYLINE [Concomitant]
     Indication: PAIN
     Dosage: 10 MG, 1X/DAY NOCTE
     Route: 048
     Dates: start: 20040101

REACTIONS (2)
  - MEMORY IMPAIRMENT [None]
  - RENAL FAILURE CHRONIC [None]
